FAERS Safety Report 6335608-X (Version None)
Quarter: 2009Q3

REPORT INFORMATION
  Report Type: 
  Country: None (occurrence: None)
  Receive Date: 20090826
  Receipt Date: 20090811
  Transmission Date: 20100115
  Serious: Yes (Other)
  Sender: FDA-Public Use
  Company Number: 1000005412

PATIENT
  Age: 58 Year
  Sex: Male
  Weight: 87 kg

DRUGS (4)
  1. LEXAPRO [Suspect]
     Indication: DEPRESSION
     Dosage: 10 MG (410 MG,1 IN 1 D), ORAL
     Route: 048
     Dates: start: 20090101, end: 20090101
  2. LEXAPRO [Suspect]
     Indication: DEPRESSION
     Dosage: 5 MG (10 MG,1 IN 2 D), ORAL
     Route: 048
     Dates: start: 20090101, end: 20090223
  3. LEXAPRO [Suspect]
     Indication: DEPRESSION
     Dosage: 10 MG (10 MG,1 IN 1 D),ORAL; 20 MG (20 MG,1 IN 1 D),ORAL
     Route: 048
     Dates: start: 20080501, end: 20080901
  4. LEXAPRO [Suspect]
     Indication: DEPRESSION
     Dosage: 10 MG (10 MG,1 IN 1 D),ORAL; 20 MG (20 MG,1 IN 1 D),ORAL
     Route: 048
     Dates: start: 20080901, end: 20081201

REACTIONS (4)
  - ANAEMIA [None]
  - ARTHRALGIA [None]
  - PETECHIAE [None]
  - THROMBOCYTOPENIA [None]
